FAERS Safety Report 8901425 (Version 1)
Quarter: 2012Q4

REPORT INFORMATION
  Report Type: Report from Study
  Country: CA (occurrence: CA)
  Receive Date: 20121109
  Receipt Date: 20121109
  Transmission Date: 20130627
  Serious: Yes (Other)
  Sender: FDA-Public Use
  Company Number: CA-JNJFOC-20121016697

PATIENT
  Sex: Female
  Weight: 86.9 kg

DRUGS (15)
  1. REMICADE [Suspect]
     Indication: CROHN^S DISEASE
     Route: 042
  2. REMICADE [Suspect]
     Indication: CROHN^S DISEASE
     Route: 042
     Dates: start: 20120707
  3. MICARDIS [Concomitant]
     Route: 065
  4. ALVESCO [Concomitant]
     Route: 065
  5. METFORMIN [Concomitant]
     Route: 065
  6. ADALAT [Concomitant]
     Route: 065
  7. PREDNISONE [Concomitant]
     Route: 065
  8. VENTOLIN [Concomitant]
     Route: 065
  9. SPIRIVA [Concomitant]
     Route: 065
  10. LANTUS [Concomitant]
     Route: 065
  11. ASA [Concomitant]
     Route: 065
  12. SEREVENT (SALMETEROL XINAFOATE) [Concomitant]
     Route: 065
  13. CODEINE [Concomitant]
     Route: 065
  14. TRAZODONE [Concomitant]
     Route: 065
  15. CRESTOR [Concomitant]
     Route: 065

REACTIONS (2)
  - Lower respiratory tract infection [Not Recovered/Not Resolved]
  - Herpes zoster [Not Recovered/Not Resolved]
